FAERS Safety Report 16708764 (Version 1)
Quarter: 2019Q3

REPORT INFORMATION
  Report Type: Spontaneous
  Country: US (occurrence: US)
  Receive Date: 20190629
  Receipt Date: 20190629
  Transmission Date: 20191004
  Serious: Yes (Hospitalization)
  Sender: FDA-Public Use
  Company Number: None

PATIENT
  Age: 77 Year
  Sex: Female
  Weight: 60.9 kg

DRUGS (2)
  1. CARBOPLATIN. [Suspect]
     Active Substance: CARBOPLATIN
     Dates: end: 20171002
  2. GEMCITABINE HYDROCHLORIDE. [Suspect]
     Active Substance: GEMCITABINE HYDROCHLORIDE
     Dates: end: 20171002

REACTIONS (7)
  - Neutropenia [None]
  - Diarrhoea [None]
  - Abdominal pain [None]
  - Pain [None]
  - Vomiting [None]
  - Nausea [None]
  - Intestinal obstruction [None]

NARRATIVE: CASE EVENT DATE: 20171010
